FAERS Safety Report 8283917 (Version 2)
Quarter: 2013Q3

REPORT INFORMATION
  Report Type: Report from Study
  Country: GT (occurrence: GT)
  Receive Date: 20111212
  Receipt Date: 20130902
  Transmission Date: 20140515
  Serious: Yes (Life-Threatening, Hospitalization)
  Sender: FDA-Public Use
  Company Number: PHHO2011GT019900

PATIENT
  Age: 80 Year
  Sex: Female
  Weight: 46.2 kg

DRUGS (6)
  1. ALISKIREN [Suspect]
     Indication: CARDIOVASCULAR DISORDER
     Route: 048
     Dates: start: 20100224
  2. METFORMIN [Suspect]
     Indication: TYPE 2 DIABETES MELLITUS
     Dosage: 1700 MG, BID
     Route: 048
     Dates: start: 198211, end: 20111124
  3. GLIMEPIRIDE [Suspect]
     Indication: TYPE 2 DIABETES MELLITUS
     Dosage: 4 MG, QD
     Route: 048
     Dates: start: 198211, end: 20111123
  4. ENALAPRIL [Concomitant]
     Indication: HYPERTENSION
     Dosage: 10 MG, QD
     Route: 048
     Dates: start: 20091202
  5. BISOPROLOL [Concomitant]
     Indication: HYPERTENSION
     Dosage: 5 MG, QD
     Route: 048
     Dates: start: 20100113
  6. HYDROCHLOROTHIAZIDE [Concomitant]
     Indication: HYPERTENSION
     Dosage: 3.25 MG, QD
     Route: 048
     Dates: start: 20100113

REACTIONS (2)
  - Concomitant disease progression [Recovered/Resolved]
  - Shock hypoglycaemic [Recovered/Resolved]
